FAERS Safety Report 9079473 (Version 1)
Quarter: 2013Q1

REPORT INFORMATION
  Report Type: Spontaneous
  Country: IE (occurrence: IE)
  Receive Date: 20130215
  Receipt Date: 20130215
  Transmission Date: 20140127
  Serious: Yes (Hospitalization)
  Sender: FDA-Public Use
  Company Number: IE-ASTRAZENECA-2013SE09691

PATIENT
  Age: 12 Month
  Sex: Male

DRUGS (3)
  1. SYNAGIS [Suspect]
     Route: 030
     Dates: start: 20121002, end: 20121002
  2. SYNAGIS [Suspect]
     Route: 030
     Dates: start: 20121121, end: 20121121
  3. SYNAGIS [Suspect]
     Route: 030
     Dates: start: 20130201

REACTIONS (2)
  - Respiratory syncytial virus test positive [Recovered/Resolved]
  - Influenza B virus test positive [Recovered/Resolved]
